FAERS Safety Report 8173065-1 (Version None)
Quarter: 2012Q1

REPORT INFORMATION
  Report Type: 
  Country: None (occurrence: None)
  Receive Date: 20120223
  Receipt Date: 20120215
  Transmission Date: 20120608
  Serious: Yes (Death)
  Sender: FDA-Public Use
  Company Number: 2011MA018128

PATIENT
  Age: 52 Year
  Sex: Female
  Weight: 54.8852 kg

DRUGS (30)
  1. WARFARIN SODIUM [Concomitant]
  2. CHANTIX [Concomitant]
  3. ACETAMINOPHEN AND HYDROCODONE BITARTRATE [Concomitant]
  4. PLAVIX [Concomitant]
  5. LUNESTA [Concomitant]
  6. TOPIRAMATE [Concomitant]
  7. POTASSIUM CHLORIDE [Concomitant]
  8. SPIRIVA [Concomitant]
  9. CYMBALTA [Concomitant]
  10. ALLEGRA [Concomitant]
  11. LORAZEPAM [Concomitant]
  12. VALIUM [Concomitant]
  13. LASIX [Concomitant]
  14. NEXIUM [Concomitant]
  15. LOPERAMIDE HCL [Concomitant]
  16. PAROXETINE [Concomitant]
  17. TRAMADOL HCL [Suspect]
     Indication: PAIN
     Dosage: 50 MG; Q4H; PO
     Route: 048
  18. FESOTERODINE; PLACEBO (CODE NOT BROKEN) [Suspect]
     Indication: HYPERTONIC BLADDER
     Dosage: 8 MG; QD; PO
     Route: 048
  19. GABAPENTIN [Concomitant]
  20. COMBIVENT [Concomitant]
  21. HYDROMORPHONE HCL [Concomitant]
  22. HYDROCODONE BITARTRATE [Concomitant]
  23. REMERON [Concomitant]
  24. BENADRYL [Concomitant]
  25. CYCLOBENZAPRINE HCL [Concomitant]
  26. XANAX [Concomitant]
  27. AMITRIPTYLINE HCL [Concomitant]
  28. ATIVAN [Concomitant]
  29. RISPERDAL [Concomitant]
  30. ACETYLSALICLIC ACID [Concomitant]

REACTIONS (10)
  - OVERDOSE [None]
  - HYPERTENSION [None]
  - CORONARY ARTERY DISEASE [None]
  - HYPERTENSIVE HEART DISEASE [None]
  - UNRESPONSIVE TO STIMULI [None]
  - PULMONARY EMBOLISM [None]
  - DISEASE PROGRESSION [None]
  - PERITONEAL HAEMORRHAGE [None]
  - CARDIOMEGALY [None]
  - DRUG ABUSE [None]
